FAERS Safety Report 24879734 (Version 1)
Quarter: 2025Q1

REPORT INFORMATION
  Report Type: Spontaneous
  Country: NO (occurrence: NO)
  Receive Date: 20250123
  Receipt Date: 20250123
  Transmission Date: 20250408
  Serious: Yes (Hospitalization)
  Sender: FERRING
  Company Number: None

PATIENT

DRUGS (1)
  1. FIRMAGON [Suspect]
     Active Substance: DEGARELIX ACETATE
     Indication: Product used for unknown indication
     Dosage: 80 MG, MONTHLY
     Route: 058
     Dates: start: 20240207

REACTIONS (8)
  - Gait disturbance [Unknown]
  - Pallor [Unknown]
  - Cold sweat [Unknown]
  - Pruritus [Unknown]
  - Blood pressure decreased [Unknown]
  - Dyspnoea [Unknown]
  - Urticaria [Unknown]
  - Dizziness [Unknown]

NARRATIVE: CASE EVENT DATE: 20241230
